FAERS Safety Report 8305768-X (Version None)
Quarter: 2012Q2

REPORT INFORMATION
  Report Type: 
  Country: None (occurrence: None)
  Receive Date: 20120423
  Receipt Date: 20120411
  Transmission Date: 20120825
  Serious: Yes (Death)
  Sender: FDA-Public Use
  Company Number: FR-FRI-1000029943

PATIENT
  Sex: Female

DRUGS (3)
  1. CITALOPRAM HYDROBROMIDE [Suspect]
     Dosage: 40 TO 60 MG DAILY
     Route: 048
     Dates: start: 20020101
  2. CONTRACEPTIVES [Concomitant]
  3. ACETAMINOPHEN [Concomitant]

REACTIONS (3)
  - SUDDEN DEATH [None]
  - MALAISE [None]
  - DRUG LEVEL ABOVE THERAPEUTIC [None]
